FAERS Safety Report 6931390-3 (Version None)
Quarter: 2010Q3

REPORT INFORMATION
  Report Type: 
  Country: None (occurrence: None)
  Receive Date: 20100819
  Receipt Date: 20100810
  Transmission Date: 20110219
  Serious: Yes (Other)
  Sender: FDA-Public Use
  Company Number: GB-JNJFOC-20100804328

PATIENT
  Age: 27 Year
  Sex: Male

DRUGS (2)
  1. RISPERDAL [Suspect]
     Indication: AUTISM
     Route: 048
  2. RISPERDAL [Suspect]
     Route: 048

REACTIONS (5)
  - AGGRESSION [None]
  - BEDRIDDEN [None]
  - EYE DISORDER [None]
  - INSOMNIA [None]
  - OFF LABEL USE [None]
